FAERS Safety Report 14493965 (Version 1)
Quarter: 2018Q1

REPORT INFORMATION
  Report Type: Spontaneous
  Country: US (occurrence: US)
  Receive Date: 20180206
  Receipt Date: 20180206
  Transmission Date: 20180509
  Serious: No
  Sender: FDA-Public Use
  Company Number: US-VIFOR (INTERNATIONAL) INC.-VIT-2018-01322

PATIENT
  Sex: Female

DRUGS (6)
  1. VELTASSA [Suspect]
     Active Substance: PATIROMER
     Indication: HYPERKALAEMIA
     Route: 048
     Dates: start: 20160713
  2. SODIUM BICARBONATE. [Concomitant]
     Active Substance: SODIUM BICARBONATE
  3. CLONIDINE HYDROCHLORIDE. [Concomitant]
     Active Substance: CLONIDINE HYDROCHLORIDE
  4. BYSTOLIC [Concomitant]
     Active Substance: NEBIVOLOL HYDROCHLORIDE
  5. DOCUSATE SODIUM. [Concomitant]
     Active Substance: DOCUSATE SODIUM
  6. JANUVIA [Concomitant]
     Active Substance: SITAGLIPTIN PHOSPHATE

REACTIONS (1)
  - Influenza [Unknown]
